FAERS Safety Report 7716356-8 (Version None)
Quarter: 2011Q3

REPORT INFORMATION
  Report Type: 
  Country: None (occurrence: None)
  Receive Date: 20110829
  Receipt Date: 20110819
  Transmission Date: 20111222
  Serious: Yes (Other)
  Sender: FDA-Public Use
  Company Number: PHHY2011GB74558

PATIENT
  Age: 72 Year
  Sex: Male
  Weight: 74.6 kg

DRUGS (6)
  1. OXALIPLATIN [Suspect]
     Indication: COLON CANCER
     Dosage: 250 MG, UNK
     Route: 042
     Dates: start: 20110131
  2. ORAMORPH SR [Concomitant]
  3. CAPECITABINE [Suspect]
     Indication: COLON CANCER
     Dosage: 1950 MG, UNK
     Route: 048
     Dates: start: 20110131
  4. FYBOGEL [Concomitant]
     Dosage: UNK
  5. ACETAMINOPHEN [Concomitant]
  6. DEXAMETHASONE [Concomitant]
     Dosage: 2 MG, TID
     Route: 048

REACTIONS (4)
  - UNRESPONSIVE TO STIMULI [None]
  - BLOOD PRESSURE INCREASED [None]
  - STARING [None]
  - MUSCULAR WEAKNESS [None]
